FAERS Safety Report 7462652-1 (Version None)
Quarter: 2011Q1

REPORT INFORMATION
  Report Type: 
  Country: None (occurrence: None)
  Receive Date: 20110302
  Receipt Date: 20100716
  Transmission Date: 20110831
  Serious: No
  Sender: FDA-Public Use
  Company Number: 163-21880-10070953

PATIENT
  Age: 68 Year
  Sex: Male

DRUGS (2)
  1. REVLIMID [Suspect]
     Indication: MULTIPLE MYELOMA
     Dosage: 15 MG, QOD X 3WKS, THEN 1WK OFF, PO
     Route: 048
     Dates: start: 20100609
  2. DEXAMETHASONE [Concomitant]

REACTIONS (12)
  - DRUG INTOLERANCE [None]
  - NAUSEA [None]
  - HYPERSOMNIA [None]
  - HICCUPS [None]
  - WEIGHT DECREASED [None]
  - FATIGUE [None]
  - VOMITING [None]
  - GASTROOESOPHAGEAL REFLUX DISEASE [None]
  - DIARRHOEA [None]
  - ASTHENIA [None]
  - HEADACHE [None]
  - RENAL DISORDER [None]
